FAERS Safety Report 4538241-5 (Version None)
Quarter: 2004Q4

REPORT INFORMATION
  Report Type: 
  Country: None (occurrence: None)
  Receive Date: 20041227
  Receipt Date: 20041215
  Transmission Date: 20050328
  Serious: Yes (Other)
  Sender: FDA-Public Use
  Company Number: US-JNJFOC-20040703409

PATIENT
  Sex: Female
  Weight: 63.5 kg

DRUGS (14)
  1. REMICADE [Suspect]
     Route: 042
  2. REMICADE [Suspect]
     Route: 042
  3. REMICADE [Suspect]
     Indication: RHEUMATOID ARTHRITIS
     Route: 042
  4. METHOTREXATE [Suspect]
     Indication: DRUG USE FOR UNKNOWN INDICATION
  5. PROCRIT [Concomitant]
     Dosage: 2-4 TIMES PER WEEK
  6. HEMATENIC [Concomitant]
  7. FOLIC ACID [Concomitant]
     Dosage: GIVEN WITH METHOTREXATE
  8. LIPITOR [Concomitant]
  9. CARDIZEM LA [Concomitant]
  10. TOPROL-XL [Concomitant]
  11. ULTRACET [Concomitant]
     Indication: PAIN
     Dosage: AS NEEDED
  12. CALTRATE CALCIUM [Concomitant]
  13. CORTISONE [Concomitant]
  14. IRON [Concomitant]

REACTIONS (9)
  - ANGINA PECTORIS [None]
  - ARTHROPATHY [None]
  - BREAST OPERATION [None]
  - CARDIAC OPERATION [None]
  - CARPAL TUNNEL SYNDROME [None]
  - CORONARY ARTERY STENOSIS [None]
  - FULL BLOOD COUNT DECREASED [None]
  - PAIN [None]
  - SYNCOPE [None]
